FAERS Safety Report 5402002-5 (Version None)
Quarter: 2007Q3

REPORT INFORMATION
  Report Type: 
  Country: None (occurrence: None)
  Receive Date: 20070727
  Receipt Date: 20060915
  Transmission Date: 20080115
  Serious: Yes (Other)
  Sender: FDA-Public Use
  Company Number: THYM-10599

PATIENT
  Age: 27 Year
  Sex: Male
  Weight: 62.6 kg

DRUGS (2)
  1. THYMOGLOBULIN [Suspect]
     Indication: ACUTE LYMPHOCYTIC LEUKAEMIA
     Dosage: 29 MG QD;IV
     Route: 042
     Dates: start: 20050620, end: 20050622
  2. CYCLOPHOSPHAMIDE [Concomitant]

REACTIONS (8)
  - BLOOD PRESSURE DECREASED [None]
  - BLOOD PRESSURE FLUCTUATION [None]
  - BODY TEMPERATURE FLUCTUATION [None]
  - CHILLS [None]
  - HAEMOLYSIS [None]
  - HEART RATE INCREASED [None]
  - NAUSEA [None]
  - VOMITING [None]
